FAERS Safety Report 10060010 (Version 1)
Quarter: 2014Q2

REPORT INFORMATION
  Report Type: Spontaneous
  Country: CH (occurrence: CH)
  Receive Date: 20140404
  Receipt Date: 20140404
  Transmission Date: 20141212
  Serious: Yes (Life-Threatening)
  Sender: FDA-Public Use
  Company Number: CH-TEVA-473383USA

PATIENT
  Age: 70 Year
  Sex: Female

DRUGS (10)
  1. RIBOMUSTIN [Suspect]
     Indication: CHRONIC LYMPHOCYTIC LEUKAEMIA
     Route: 041
     Dates: start: 201204, end: 201209
  2. REDIMUNE [Suspect]
     Indication: IMMUNOGLOBULINS DECREASED
     Route: 041
     Dates: start: 200410
  3. PRIVIGEN                           /00025201/ [Suspect]
     Indication: IMMUNOGLOBULINS DECREASED
     Route: 041
     Dates: start: 200901, end: 201111
  4. PREDNISONE [Suspect]
     Indication: CHRONIC LYMPHOCYTIC LEUKAEMIA
     Route: 048
     Dates: start: 200303
  5. LEUKERAN [Suspect]
     Indication: CHRONIC LYMPHOCYTIC LEUKAEMIA
     Route: 048
     Dates: start: 200303
  6. MABTHERA [Suspect]
     Indication: CHRONIC LYMPHOCYTIC LEUKAEMIA
     Route: 041
     Dates: start: 200801
  7. CYCLOPHOSPHAMIDE [Suspect]
     Indication: CHRONIC LYMPHOCYTIC LEUKAEMIA
     Route: 065
     Dates: start: 200801
  8. ONCOVIN [Suspect]
     Indication: CHRONIC LYMPHOCYTIC LEUKAEMIA
     Route: 041
     Dates: start: 200801, end: 200805
  9. INTRATECT [Suspect]
     Indication: IMMUNOGLOBULINS DECREASED
     Route: 041
     Dates: start: 201112, end: 201312
  10. FLUDARABINE [Suspect]
     Indication: CHRONIC LYMPHOCYTIC LEUKAEMIA
     Route: 042
     Dates: start: 200410

REACTIONS (1)
  - Creutzfeldt-Jakob disease [Not Recovered/Not Resolved]
